FAERS Safety Report 9539566 (Version 1)
Quarter: 2013Q2

REPORT INFORMATION
  Report Type: Spontaneous
  Country: US (occurrence: None)
  Receive Date: 20130521
  Receipt Date: 20130521
  Transmission Date: 20140414
  Serious: Yes (Other)
  Sender: FDA-Public Use
  Company Number: 1000042493

PATIENT
  Age: 79 Year
  Sex: Female

DRUGS (4)
  1. NORVASC (AMLODIPINE BESILATE)(AMLODIPINE BESILATE) [Concomitant]
  2. PAXIL (PAROXETINE HYDROCHLORIDE) (PAROOXETINE HYDROCHLORIDE) [Concomitant]
  3. CLARITIN (LORATIDINE) (LORATIDIINE) [Concomitant]
  4. TUDORZA PRESSAIR (ACLIDINIUM BROMIDE) (400 MICROGRAM, POWDER) [Suspect]

REACTIONS (2)
  - Abdominal pain upper [None]
  - Diarrhoea [None]
